FAERS Safety Report 21192176 (Version 2)
Quarter: 2022Q3

REPORT INFORMATION
  Report Type: Spontaneous
  Country: US (occurrence: None)
  Receive Date: 20220809
  Receipt Date: 20220812
  Transmission Date: 20221027
  Serious: Yes (Hospitalization)
  Sender: FDA-Public Use
  Company Number: 2022A275843

PATIENT
  Age: 976 Month
  Sex: Male
  Weight: 79.8 kg

DRUGS (2)
  1. PULMICORT FLEXHALER [Suspect]
     Active Substance: BUDESONIDE
     Indication: Chronic obstructive pulmonary disease
     Dosage: 180MCG 2 PUFFS TWICE A DAY
     Route: 055
     Dates: start: 20180101
  2. PULMICORT FLEXHALER [Suspect]
     Active Substance: BUDESONIDE
     Indication: Chronic obstructive pulmonary disease
     Route: 055

REACTIONS (6)
  - Pneumonia [Recovered/Resolved]
  - Oesophageal disorder [Unknown]
  - Gastrooesophageal sphincter insufficiency [Unknown]
  - Pulmonary valve incompetence [Unknown]
  - Device malfunction [Unknown]
  - Hypersensitivity [Unknown]

NARRATIVE: CASE EVENT DATE: 20211201
